FAERS Safety Report 9071582 (Version 1)
Quarter: 2013Q1

REPORT INFORMATION
  Report Type: Report from Study
  Country: US (occurrence: US)
  Receive Date: 20130129
  Receipt Date: 20130129
  Transmission Date: 20140127
  Serious: Yes (Other)
  Sender: FDA-Public Use
  Company Number: US-ROCHE-1180731

PATIENT
  Sex: 0

DRUGS (5)
  1. MYCOPHENOLATE MOFETIL [Suspect]
     Indication: PROPHYLAXIS AGAINST TRANSPLANT REJECTION
     Route: 065
  2. MYCOPHENOLATE MOFETIL [Suspect]
     Dosage: IN LATE 2002 IT WAS REDUCED
     Route: 065
  3. TACROLIMUS [Suspect]
     Indication: PROPHYLAXIS AGAINST TRANSPLANT REJECTION
     Dosage: INITIATED POSTOPERATIVE DAY 2, 10-12 NG/ML FOR 3 MONTHS
     Route: 065
  4. RATG [Suspect]
     Indication: PROPHYLAXIS AGAINST TRANSPLANT REJECTION
     Dosage: POSTOPERATIVE DAYS 0-4
     Route: 065
  5. METHYLPREDNISOLONE [Suspect]
     Indication: PROPHYLAXIS AGAINST TRANSPLANT REJECTION
     Route: 065

REACTIONS (40)
  - Oesophageal candidiasis [Unknown]
  - Brain abscess [Unknown]
  - Meningitis cryptococcal [Unknown]
  - Pneumonia cryptococcal [Unknown]
  - Fungal peritonitis [Unknown]
  - Basal cell carcinoma [Unknown]
  - Polyomavirus-associated nephropathy [Unknown]
  - Renal cell carcinoma [Unknown]
  - Pneumocystis jirovecii infection [Unknown]
  - Prostate cancer [Unknown]
  - Squamous cell carcinoma [Unknown]
  - Malignant melanoma [Unknown]
  - Bladder cancer [Unknown]
  - Lung neoplasm malignant [Unknown]
  - Colon cancer [Unknown]
  - Cholangiocarcinoma [Unknown]
  - Skin cancer [Unknown]
  - Post transplant lymphoproliferative disorder [Unknown]
  - Extranodal marginal zone B-cell lymphoma (MALT type) [Unknown]
  - Uterine cancer [Unknown]
  - Breast cancer [Unknown]
  - Cervix carcinoma [Unknown]
  - Neutropenia [Unknown]
  - Thyroid cancer [Unknown]
  - Leiomyosarcoma [Unknown]
  - Oropharyngeal cancer [Unknown]
  - Drug intolerance [Unknown]
  - Cytomegalovirus infection [Unknown]
  - Herpes zoster [Unknown]
  - Cytomegalovirus viraemia [Unknown]
  - Viraemia [Unknown]
  - Herpes simplex [Unknown]
  - Herpes zoster [Unknown]
  - Adenovirus infection [Unknown]
  - Human herpesvirus 6 infection [Unknown]
  - Epstein-Barr viraemia [Unknown]
  - Parvovirus infection [Unknown]
  - Cryptosporidiosis infection [Unknown]
  - Strongyloidiasis [Unknown]
  - West Nile viral infection [Unknown]
